FAERS Safety Report 11227813 (Version 1)
Quarter: 2015Q2

REPORT INFORMATION
  Report Type: Spontaneous
  Country: US (occurrence: US)
  Receive Date: 20150630
  Receipt Date: 20150630
  Transmission Date: 20150821
  Serious: No
  Sender: FDA-Public Use
  Company Number: US-BIOGENIDEC-2015BI089139

PATIENT
  Age: 64 Year
  Sex: Female

DRUGS (5)
  1. LOSARTAN [Concomitant]
     Active Substance: LOSARTAN
  2. PANTOPRAZOLE SODIUM [Concomitant]
  3. AVONEX [Suspect]
     Active Substance: INTERFERON BETA-1A
     Indication: MULTIPLE SCLEROSIS
     Route: 030
     Dates: start: 20150311
  4. POTASSIUM [Concomitant]
     Active Substance: POTASSIUM
  5. ASPIRIN. [Concomitant]
     Active Substance: ASPIRIN

REACTIONS (1)
  - Contusion [Unknown]
